FAERS Safety Report 18080817 (Version 1)
Quarter: 2020Q3

REPORT INFORMATION
  Report Type: Report from Study
  Country: IT (occurrence: IT)
  Receive Date: 20200728
  Receipt Date: 20200728
  Transmission Date: 20201103
  Serious: Yes (Hospitalization)
  Sender: FDA-Public Use
  Company Number: IT-MYLANLABS-2020M1066683

PATIENT
  Age: 49 Year
  Sex: Female
  Weight: 75 kg

DRUGS (1)
  1. PACLITAXEL. [Suspect]
     Active Substance: PACLITAXEL
     Indication: BREAST NEOPLASM
     Dosage: 150 MILLIGRAM, CYCLE
     Route: 042
     Dates: start: 20200703, end: 20200703

REACTIONS (3)
  - Erythema [Recovered/Resolved]
  - Feeling hot [Recovered/Resolved]
  - Chest discomfort [Recovered/Resolved]

NARRATIVE: CASE EVENT DATE: 20200703
